FAERS Safety Report 7601739-7 (Version None)
Quarter: 2011Q2

REPORT INFORMATION
  Report Type: 
  Country: None (occurrence: None)
  Receive Date: 20110629
  Receipt Date: 20110502
  Transmission Date: 20111010
  Serious: Yes (Other)
  Sender: FDA-Public Use
  Company Number: 774777

PATIENT
  Age: 64 Year
  Sex: Female

DRUGS (3)
  1. THIORIDAZINE HCL [Concomitant]
  2. DEPAKOTE [Concomitant]
  3. KLONOPIN [Suspect]
     Indication: ANXIETY
     Dosage: 1.5 MG ORAL
     Route: 048
     Dates: start: 20090101, end: 20110421

REACTIONS (1)
  - DRUG WITHDRAWAL SYNDROME [None]
